FAERS Safety Report 14815962 (Version 1)
Quarter: 2018Q2

REPORT INFORMATION
  Report Type: Spontaneous
  Country: US (occurrence: US)
  Receive Date: 20180426
  Receipt Date: 20180426
  Transmission Date: 20180711
  Serious: Yes (Other)
  Sender: FDA-Public Use
  Company Number: US-THE MENTHOLATUM COMPANY-2046626

PATIENT
  Age: 29 Year
  Sex: Female

DRUGS (1)
  1. RED CROSS TOOTHACHE [Suspect]
     Active Substance: EUGENOL
     Indication: TOOTHACHE
     Route: 004
     Dates: start: 20180408, end: 20180408

REACTIONS (1)
  - Chemical burn [Recovering/Resolving]

NARRATIVE: CASE EVENT DATE: 20180408
